FAERS Safety Report 25160133 (Version 1)
Quarter: 2025Q2

REPORT INFORMATION
  Report Type: Spontaneous
  Country: US (occurrence: US)
  Receive Date: 20250404
  Receipt Date: 20250404
  Transmission Date: 20250716
  Serious: No
  Sender: TOLMAR
  Company Number: US-TOLMAR, INC.-25US058128

PATIENT

DRUGS (2)
  1. FENSOLVI [Suspect]
     Active Substance: LEUPROLIDE ACETATE
     Indication: Product used for unknown indication
  2. FENSOLVI [Suspect]
     Active Substance: LEUPROLIDE ACETATE

REACTIONS (2)
  - Product preparation error [Unknown]
  - Device connection issue [Unknown]
